FAERS Safety Report 5457592-3 (Version None)
Quarter: 2007Q3

REPORT INFORMATION
  Report Type: 
  Country: None (occurrence: None)
  Receive Date: 20070918
  Receipt Date: 20070907
  Transmission Date: 20080115
  Serious: No
  Sender: FDA-Public Use
  Company Number: US-BOEHRINGER INGELHEIM PHARMACEUTICALS, INC.-2007-BP-19445BP

PATIENT
  Sex: Male

DRUGS (3)
  1. FLOMAX [Suspect]
     Indication: BENIGN PROSTATIC HYPERPLASIA
     Route: 048
     Dates: end: 20070801
  2. VIAGRA [Suspect]
  3. ASPIRIN [Concomitant]

REACTIONS (2)
  - ALTERED VISUAL DEPTH PERCEPTION [None]
  - VISUAL FIELD DEFECT [None]
